FAERS Safety Report 8543318-3 (Version None)
Quarter: 2012Q2

REPORT INFORMATION
  Report Type: 
  Country: None (occurrence: None)
  Receive Date: 20120412
  Receipt Date: 20090413
  Transmission Date: 20120825
  Serious: Yes (Other)
  Sender: FDA-Public Use
  Company Number: PHEH2006US10891

PATIENT
  Age: 50 Year
  Sex: Female
  Weight: 88 kg

DRUGS (24)
  1. VIOXX [Concomitant]
  2. ADVAIR HFA [Concomitant]
  3. XELODA [Concomitant]
  4. FEMARA [Concomitant]
  5. LORAZEPAM [Concomitant]
  6. GEMZAR [Concomitant]
  7. OXYCONTIN [Concomitant]
  8. PERCOCET [Concomitant]
  9. FLONASE [Concomitant]
  10. NEXIUM [Concomitant]
  11. ZOMETA [Suspect]
     Indication: METASTASES TO BONE
     Dosage: 4 MG, INTRAVENOUS
     Route: 042
     Dates: start: 20020423, end: 20050128
  12. CHEMOTHERAPEUTICS NOS (NO INGREDIENTS/SUBSTANCES) [Concomitant]
  13. MEGACE [Concomitant]
  14. COUMADIN [Concomitant]
  15. EFFEXOR [Concomitant]
  16. KADIAN [Concomitant]
  17. PERIDEX (CHLORHEXIDINE GLUCONATE) [Concomitant]
  18. CLINDAMYCIN [Concomitant]
  19. AMOXICILLIN [Concomitant]
  20. AREDIA [Suspect]
     Indication: METASTASES TO BONE
     Dosage: 90 MG, INTRAVENOUS
     Route: 042
     Dates: start: 20010401, end: 20011101
  21. RADIATION (NO INGREDIENTS/SUBSTANCES) [Concomitant]
  22. COMBIVENT [Concomitant]
  23. VALTREX [Concomitant]
  24. DILAUDID [Concomitant]

REACTIONS (20)
  - MASTICATION DISORDER [None]
  - NEOPLASM MALIGNANT [None]
  - BREAST CANCER RECURRENT [None]
  - METASTASES TO MOUTH [None]
  - JOINT STIFFNESS [None]
  - FISTULA DISCHARGE [None]
  - DEFORMITY [None]
  - PAIN [None]
  - GENERAL PHYSICAL HEALTH DETERIORATION [None]
  - ANXIETY [None]
  - HIP ARTHROPLASTY [None]
  - PAIN IN JAW [None]
  - TOOTH DISORDER [None]
  - IMPAIRED HEALING [None]
  - NEOPLASM PROGRESSION [None]
  - OSTEONECROSIS [None]
  - METASTASES TO LIVER [None]
  - DECREASED INTEREST [None]
  - TOOTH EXTRACTION [None]
  - BONE EROSION [None]
